FAERS Safety Report 17005306 (Version 1)
Quarter: 2019Q4

REPORT INFORMATION
  Report Type: Spontaneous
  Country: US (occurrence: US)
  Receive Date: 20191107
  Receipt Date: 20191107
  Transmission Date: 20200122
  Serious: Yes (Hospitalization, Other)
  Sender: FDA-Public Use
  Company Number: US-JNJFOC-20191043342

PATIENT
  Sex: Female

DRUGS (8)
  1. SYNTHROID [Concomitant]
     Active Substance: LEVOTHYROXINE SODIUM
  2. KLONOPIN [Concomitant]
     Active Substance: CLONAZEPAM
  3. TOPAMAX [Suspect]
     Active Substance: TOPIRAMATE
     Indication: SEIZURE
     Dosage: UNSPECIFIED DOSE PLUS 75 MG
     Route: 048
     Dates: start: 201904
  4. HYDROCODONE [Concomitant]
     Active Substance: HYDROCODONE
  5. LEXAPRO [Concomitant]
     Active Substance: ESCITALOPRAM OXALATE
  6. VISTARIL [Concomitant]
     Active Substance: HYDROXYZINE PAMOATE
  7. TOPAMAX [Suspect]
     Active Substance: TOPIRAMATE
     Indication: MIGRAINE
     Route: 048
     Dates: start: 201707
  8. ABILIFY [Concomitant]
     Active Substance: ARIPIPRAZOLE

REACTIONS (12)
  - Swelling [Unknown]
  - Psychotic disorder [Unknown]
  - Pain [Unknown]
  - Catatonia [Unknown]
  - Vitamin D decreased [Unknown]
  - Memory impairment [Unknown]
  - Myalgia [Unknown]
  - Abnormal weight gain [Unknown]
  - Aggression [Unknown]
  - Fluid retention [Unknown]
  - Blood thyroid stimulating hormone increased [Unknown]
  - Urinary incontinence [Recovering/Resolving]

NARRATIVE: CASE EVENT DATE: 2018
